FAERS Safety Report 6873114-4 (Version None)
Quarter: 2010Q3

REPORT INFORMATION
  Report Type: 
  Country: None (occurrence: None)
  Receive Date: 20100723
  Receipt Date: 20090117
  Transmission Date: 20110219
  Serious: No
  Sender: FDA-Public Use
  Company Number: US-PFIZER INC-2008099078

PATIENT
  Sex: Female
  Weight: 69.5 kg

DRUGS (6)
  1. CHANTIX [Suspect]
     Indication: SMOKING CESSATION THERAPY
     Dosage: 1 MG, 2X/DAY
     Dates: start: 20081121
  2. ANTIHYPERTENSIVES [Concomitant]
  3. CHOLESTEROL- AND TRIGLYCERIDE REDUCERS [Concomitant]
  4. WELLBUTRIN [Concomitant]
  5. CALCIUM WITH VITAMIN D [Concomitant]
  6. ASPIRIN [Concomitant]

REACTIONS (10)
  - DISTURBANCE IN ATTENTION [None]
  - DYSGEUSIA [None]
  - EMOTIONAL DISORDER [None]
  - FATIGUE [None]
  - INCORRECT DOSE ADMINISTERED [None]
  - LIP DRY [None]
  - NAUSEA [None]
  - NERVOUSNESS [None]
  - TOBACCO WITHDRAWAL SYMPTOMS [None]
  - TREMOR [None]
